FAERS Safety Report 20135541 (Version 5)
Quarter: 2022Q4

REPORT INFORMATION
  Report Type: Spontaneous
  Country: US (occurrence: US)
  Receive Date: 20211201
  Receipt Date: 20221205
  Transmission Date: 20230112
  Serious: No
  Sender: FDA-Public Use
  Company Number: US-PFIZER INC-2020371079

PATIENT
  Age: 89 Year
  Sex: Male
  Weight: 71.94 kg

DRUGS (4)
  1. VYNDAMAX [Suspect]
     Active Substance: TAFAMIDIS
     Dosage: 61 MG
  2. ROSUVASTATIN [Concomitant]
     Active Substance: ROSUVASTATIN
     Dosage: UNK
  3. ROSUVASTATIN CALCIUM [Concomitant]
     Active Substance: ROSUVASTATIN CALCIUM
     Dosage: UNK
  4. RIVAROXABAN [Concomitant]
     Active Substance: RIVAROXABAN
     Indication: Anticoagulant therapy
     Dosage: UNK

REACTIONS (3)
  - Hypoacusis [Unknown]
  - Dyspnoea [Unknown]
  - Eye pruritus [Unknown]
